FAERS Safety Report 10051821 (Version 10)
Quarter: 2016Q4

REPORT INFORMATION
  Report Type: Report from Study
  Country: CN (occurrence: CN)
  Receive Date: 20140402
  Receipt Date: 20161214
  Transmission Date: 20170206
  Serious: Yes (Death, Hospitalization, Other)
  Sender: FDA-Public Use
  Company Number: CN-ROCHE-1348540

PATIENT
  Age: 74 Year
  Sex: Female
  Weight: 55 kg

DRUGS (2)
  1. OXALIPLATIN. [Concomitant]
     Active Substance: OXALIPLATIN
     Indication: COLON CANCER
  2. AVASTIN [Suspect]
     Active Substance: BEVACIZUMAB
     Indication: COLON CANCER
     Route: 041
     Dates: start: 20130503, end: 20160706

REACTIONS (16)
  - Hepatic neoplasm [Unknown]
  - Pyrexia [Recovered/Resolved]
  - Transaminases increased [Unknown]
  - Limb injury [Unknown]
  - Abdominal discomfort [Recovered/Resolved]
  - Pleural effusion [Unknown]
  - Protein urine present [Unknown]
  - Condition aggravated [Fatal]
  - Syncope [Recovered/Resolved]
  - Chest discomfort [Recovered/Resolved]
  - Fall [Unknown]
  - Hepatic function abnormal [Unknown]
  - Decreased appetite [Unknown]
  - Ascites [Recovered/Resolved]
  - Skin discolouration [Unknown]
  - Gastrointestinal wall thickening [Unknown]

NARRATIVE: CASE EVENT DATE: 201311
